FAERS Safety Report 7170238-1 (Version None)
Quarter: 2010Q4

REPORT INFORMATION
  Report Type: 
  Country: None (occurrence: None)
  Receive Date: 20101123
  Receipt Date: 20100922
  Transmission Date: 20110411
  Serious: No
  Sender: FDA-Public Use
  Company Number: 019205

PATIENT
  Sex: Male
  Weight: 102.5 kg

DRUGS (2)
  1. CIMZIA [Suspect]
     Indication: CROHN'S DISEASE
     Dosage: (TWO SHOTS MONTHLY SUBCUTANEOUS)
     Route: 058
     Dates: start: 20100901
  2. OXYBUTNIN [Concomitant]

REACTIONS (3)
  - ARTHRALGIA [None]
  - FATIGUE [None]
  - INFLUENZA LIKE ILLNESS [None]
